FAERS Safety Report 6195112-9 (Version None)
Quarter: 2009Q2

REPORT INFORMATION
  Report Type: 
  Country: None (occurrence: None)
  Receive Date: 20090519
  Receipt Date: 20090512
  Transmission Date: 20091009
  Serious: No
  Sender: FDA-Public Use
  Company Number: US-JNJFOC-20090500674

PATIENT
  Sex: Female
  Weight: 107.96 kg

DRUGS (6)
  1. DURAGESIC-100 [Suspect]
     Route: 062
  2. DURAGESIC-100 [Suspect]
     Route: 062
  3. DURAGESIC-100 [Suspect]
     Indication: BACK PAIN
     Route: 062
  4. ZANAFLEX [Concomitant]
     Indication: MUSCLE RELAXANT THERAPY
     Route: 048
  5. NORCO [Concomitant]
     Indication: PAIN
     Route: 048
  6. MICROGESTIN 1.5/30 [Concomitant]
     Indication: CONTRACEPTION
     Dosage: 1.5/30 DAILY
     Route: 048

REACTIONS (4)
  - PAIN [None]
  - PRODUCT QUALITY ISSUE [None]
  - WEIGHT DECREASED [None]
  - WRONG TECHNIQUE IN DRUG USAGE PROCESS [None]
